FAERS Safety Report 5256222-3 (Version None)
Quarter: 2007Q1

REPORT INFORMATION
  Report Type: 
  Country: None (occurrence: None)
  Receive Date: 20070306
  Receipt Date: 20070228
  Transmission Date: 20070707
  Serious: Yes (Death, Other)
  Sender: FDA-Public Use
  Company Number: CN-BAYER-200710201GDS

PATIENT
  Age: 76 Year
  Sex: Male

DRUGS (6)
  1. AVELOX [Suspect]
     Indication: INFECTION
     Dosage: TOTAL DAILY DOSE: 400 MG  UNIT DOSE: 400 MG
     Route: 042
     Dates: start: 20070105, end: 20070108
  2. PANTOPRAZOLE SODIUM [Concomitant]
     Indication: DRUG USE FOR UNKNOWN INDICATION
     Dosage: TOTAL DAILY DOSE: 0.6 G  UNIT DOSE: 0.6 G
     Route: 042
     Dates: start: 20070105, end: 20070109
  3. STILAMIN [Concomitant]
     Indication: DRUG USE FOR UNKNOWN INDICATION
     Dosage: TOTAL DAILY DOSE: 3 MG  UNIT DOSE: 3 MG
     Route: 042
     Dates: start: 20070105, end: 20070109
  4. KEFADIM [Concomitant]
     Indication: DRUG USE FOR UNKNOWN INDICATION
     Dosage: TOTAL DAILY DOSE: 6 G  UNIT DOSE: 6 G
     Route: 042
     Dates: start: 20070108, end: 20070109
  5. FLUOROURACIL [Concomitant]
     Indication: DRUG USE FOR UNKNOWN INDICATION
     Dosage: TOTAL DAILY DOSE: 600 MG  UNIT DOSE: 600 MG
     Route: 042
     Dates: start: 20070105, end: 20070105
  6. METRONIDAZOLE [Concomitant]
     Indication: DRUG USE FOR UNKNOWN INDICATION
     Dosage: TOTAL DAILY DOSE: 200 ML  UNIT DOSE: 200 ML
     Route: 042

REACTIONS (11)
  - BLOOD CREATININE INCREASED [None]
  - BLOOD PRESSURE DECREASED [None]
  - BLOOD UREA INCREASED [None]
  - CYANOSIS [None]
  - LUNG INFECTION [None]
  - OXYGEN SATURATION DECREASED [None]
  - PYREXIA [None]
  - RENAL FAILURE [None]
  - SHOCK [None]
  - TACHYPNOEA [None]
  - URINE OUTPUT DECREASED [None]
